FAERS Safety Report 15849072 (Version 1)
Quarter: 2019Q1

REPORT INFORMATION
  Report Type: Other
  Country: GB (occurrence: GB)
  Receive Date: 20190121
  Receipt Date: 20190121
  Transmission Date: 20190417
  Serious: Yes (Hospitalization)
  Sender: FDA-Public Use
  Company Number: GB-HERITAGE PHARMACEUTICALS-2018HTG00379

PATIENT
  Age: 68 Year
  Sex: Female
  Weight: 71.4 kg

DRUGS (5)
  1. CASSIA [Concomitant]
  2. MST CONTINUS [Concomitant]
     Active Substance: MORPHINE SULFATE
  3. DIAZEPAM. [Concomitant]
     Active Substance: DIAZEPAM
  4. FLUOXETINE [Suspect]
     Active Substance: FLUOXETINE HYDROCHLORIDE
     Indication: DEPRESSION
     Dosage: 40 MG, 1X/DAY
     Route: 048
  5. ORAMORPH [Concomitant]
     Active Substance: MORPHINE SULFATE

REACTIONS (1)
  - Fracture [Recovering/Resolving]
